FAERS Safety Report 9633220 (Version 1)
Quarter: 2013Q4

REPORT INFORMATION
  Report Type: Spontaneous
  Country: US (occurrence: None)
  Receive Date: 20131018
  Receipt Date: 20131018
  Transmission Date: 20140711
  Serious: Yes (Life-Threatening, Hospitalization)
  Sender: FDA-Public Use
  Company Number: None

PATIENT
  Age: 48 Year
  Sex: Male
  Weight: 99.16 kg

DRUGS (2)
  1. SIMVASTATIN [Suspect]
     Indication: HYPERLIPIDAEMIA
     Dosage: ONCE DAILY
     Route: 048
     Dates: start: 200611, end: 20130903
  2. NIACIN SR [Suspect]
     Indication: HYPERLIPIDAEMIA
     Dosage: MORNING AND EVENING
     Route: 048
     Dates: start: 2006, end: 20130903

REACTIONS (2)
  - Chest pain [None]
  - Blood creatine phosphokinase increased [None]
